FAERS Safety Report 14965054 (Version 1)
Quarter: 2018Q2

REPORT INFORMATION
  Report Type: Spontaneous
  Country: US (occurrence: US)
  Receive Date: 20180511
  Receipt Date: 20180511
  Transmission Date: 20180711
  Serious: Yes (Other)
  Sender: FDA-Public Use
  Company Number: None

PATIENT
  Age: 44 Year
  Sex: Male

DRUGS (1)
  1. AVONEX [Suspect]
     Active Substance: INTERFERON BETA-1A
     Indication: MULTIPLE SCLEROSIS
     Dosage: 30MCG/5M, WEEKLY, INTRAMUSCULARLY
     Route: 030
     Dates: start: 20170227

REACTIONS (2)
  - Drug dose omission [None]
  - Pain [None]

NARRATIVE: CASE EVENT DATE: 20180511
